FAERS Safety Report 5483765-X (Version None)
Quarter: 2007Q4

REPORT INFORMATION
  Report Type: 
  Country: None (occurrence: None)
  Receive Date: 20071012
  Receipt Date: 20071011
  Transmission Date: 20080405
  Serious: Yes (Other)
  Sender: FDA-Public Use
  Company Number: A0685377A

PATIENT
  Age: 53 Year
  Sex: Male

DRUGS (13)
  1. LETAIRIS [Suspect]
     Dosage: 5MG PER DAY
     Route: 048
     Dates: start: 20070809, end: 20070912
  2. EPIVIR [Suspect]
     Indication: HIV INFECTION
     Dosage: 300MG PER DAY
     Route: 048
  3. SPIRIVA [Suspect]
     Route: 055
  4. VIREAD [Suspect]
     Indication: HIV INFECTION
     Dosage: 300MG PER DAY
     Route: 065
  5. SUSTIVA [Suspect]
     Indication: HIV INFECTION
     Dosage: 600MG PER DAY
     Route: 048
  6. LASIX [Concomitant]
     Dosage: 60MG TWICE PER DAY
  7. SILDENAFIL CITRATE [Concomitant]
     Route: 048
     Dates: start: 20070807
  8. WARFARIN SODIUM [Concomitant]
  9. ADVAIR DISKUS 100/50 [Concomitant]
     Route: 055
  10. SINGULAIR [Concomitant]
     Dosage: 10MG PER DAY
     Route: 048
  11. METFORMIN HCL [Concomitant]
     Dosage: 500MG TWICE PER DAY
  12. FLOMAX [Concomitant]
  13. WELLBUTRIN [Concomitant]
     Route: 048

REACTIONS (2)
  - ALANINE AMINOTRANSFERASE INCREASED [None]
  - ASPARTATE AMINOTRANSFERASE INCREASED [None]
